FAERS Safety Report 10923975 (Version 1)
Quarter: 2015Q1

REPORT INFORMATION
  Report Type: Spontaneous
  Country: US (occurrence: None)
  Receive Date: 20150316
  Receipt Date: 20150316
  Transmission Date: 20150721
  Serious: Yes (Other)
  Sender: FDA-Public Use
  Company Number: None

PATIENT
  Age: 6 Year
  Sex: Male
  Weight: 34.02 kg

DRUGS (5)
  1. TRIAMINIC CHILDRENS NIGHT TIME COLD AND COUGH [Suspect]
     Active Substance: DIPHENHYDRAMINE HYDROCHLORIDE\PHENYLEPHRINE HYDROCHLORIDE
     Indication: NASOPHARYNGITIS
     Dates: start: 20150114, end: 20150116
  2. TRIAMINIC CHILDRENS NIGHT TIME COLD AND COUGH [Suspect]
     Active Substance: DIPHENHYDRAMINE HYDROCHLORIDE\PHENYLEPHRINE HYDROCHLORIDE
     Indication: RESPIRATORY TRACT CONGESTION
     Dates: start: 20150114, end: 20150116
  3. TRIAMINIC CHILDRENS NIGHT TIME COLD AND COUGH [Suspect]
     Active Substance: DIPHENHYDRAMINE HYDROCHLORIDE\PHENYLEPHRINE HYDROCHLORIDE
     Indication: COUGH
     Dates: start: 20150114, end: 20150116
  4. TRIAMINIC CHILDRENS NIGHT TIME COLD AND COUGH [Suspect]
     Active Substance: DIPHENHYDRAMINE HYDROCHLORIDE\PHENYLEPHRINE HYDROCHLORIDE
     Indication: PYREXIA
     Dates: start: 20150114, end: 20150116
  5. TRIAMINIC CHILDRENS NIGHT TIME COLD AND COUGH [Suspect]
     Active Substance: DIPHENHYDRAMINE HYDROCHLORIDE\PHENYLEPHRINE HYDROCHLORIDE
     Indication: RHINORRHOEA
     Dates: start: 20150114, end: 20150116

REACTIONS (4)
  - Middle insomnia [None]
  - Agitation [None]
  - Hallucination [None]
  - Night sweats [None]

NARRATIVE: CASE EVENT DATE: 20150114
